FAERS Safety Report 13819226 (Version 1)
Quarter: 2017Q3

REPORT INFORMATION
  Report Type: Spontaneous
  Country: US (occurrence: US)
  Receive Date: 20170731
  Receipt Date: 20170731
  Transmission Date: 20171127
  Serious: Yes (Hospitalization)
  Sender: FDA-Public Use
  Company Number: None

PATIENT
  Age: 62 Year
  Sex: Male
  Weight: 60 kg

DRUGS (1)
  1. NATALIZUMAB [Suspect]
     Active Substance: NATALIZUMAB
     Indication: SYSTEMIC INFLAMMATORY RESPONSE SYNDROME
     Dates: start: 20170101, end: 20170506

REACTIONS (10)
  - Muscular weakness [None]
  - Decreased appetite [None]
  - Haemorrhage [None]
  - Pneumonia [None]
  - Fatigue [None]
  - CD4 lymphocytes decreased [None]
  - Gait disturbance [None]
  - Meningitis cryptococcal [None]
  - Neurological symptom [None]
  - Diplopia [None]

NARRATIVE: CASE EVENT DATE: 20170729
